FAERS Safety Report 5157124-3 (Version None)
Quarter: 2006Q4

REPORT INFORMATION
  Report Type: 
  Country: None (occurrence: None)
  Receive Date: 20061127
  Receipt Date: 20061116
  Transmission Date: 20070319
  Serious: Yes (Other)
  Sender: FDA-Public Use
  Company Number: PHEH2006US14342

PATIENT
  Sex: Female

DRUGS (1)
  1. FEMARA [Suspect]
     Dates: start: 20050101

REACTIONS (1)
  - NEUROPATHY [None]
